FAERS Safety Report 6301374-7 (Version None)
Quarter: 2009Q3

REPORT INFORMATION
  Report Type: 
  Country: None (occurrence: None)
  Receive Date: 20090807
  Receipt Date: 20090803
  Transmission Date: 20100115
  Serious: No
  Sender: FDA-Public Use
  Company Number: BE-ASTRAZENECA-2009SE05157

PATIENT
  Age: 54 Year
  Sex: Female
  Weight: 92 kg

DRUGS (4)
  1. CRESTOR [Suspect]
     Indication: HYPERCHOLESTEROLAEMIA
     Route: 048
     Dates: start: 20090210
  2. PROGYNOVA [Concomitant]
     Indication: OESTROGEN DEFICIENCY
     Route: 048
     Dates: start: 19880101
  3. CO-MESOPROLOL [Concomitant]
     Indication: HYPERTENSION
     Dosage: 5/125
     Route: 048
     Dates: start: 20030101
  4. NOZINAN [Concomitant]
     Indication: MENTAL DISORDER
     Route: 048

REACTIONS (1)
  - LOW DENSITY LIPOPROTEIN DECREASED [None]
